FAERS Safety Report 6047409-0 (Version None)
Quarter: 2009Q1

REPORT INFORMATION
  Report Type: 
  Country: None (occurrence: None)
  Receive Date: 20090122
  Receipt Date: 20090119
  Transmission Date: 20090719
  Serious: No
  Sender: FDA-Public Use
  Company Number: US-B.I. PHARMACEUTICALS,INC./RIDGEFIELD-2009-BP-00698BP

PATIENT
  Sex: Female
  Weight: 73 kg

DRUGS (3)
  1. ZANTAC 150 [Suspect]
     Indication: DYSPEPSIA
     Route: 048
     Dates: start: 20090117
  2. STEROIDS [Concomitant]
     Indication: EXPOSURE TO TOXIC AGENT
  3. STEROIDS [Concomitant]
     Indication: DERMATITIS CONTACT

REACTIONS (1)
  - FAECES DISCOLOURED [None]
